FAERS Safety Report 8509288-9 (Version None)
Quarter: 2012Q3

REPORT INFORMATION
  Report Type: 
  Country: None (occurrence: None)
  Receive Date: 20120713
  Receipt Date: 20120703
  Transmission Date: 20120928
  Serious: Yes (Hospitalization, Other)
  Sender: FDA-Public Use
  Company Number: US-ALEXION PHARMACEUTICALS INC.-A201201253

PATIENT
  Sex: Male
  Weight: 16.4 kg

DRUGS (7)
  1. ZANTAC [Concomitant]
     Indication: PROPHYLAXIS
     Dosage: UNK
  2. CITRIC ACID [Concomitant]
     Indication: RENAL IMPAIRMENT
     Dosage: UNK
  3. SOLIRIS [Suspect]
     Dosage: 300 MG, Q2W
     Route: 042
  4. AMLODIPINE [Concomitant]
     Indication: HYPERTENSION
     Dosage: UNK
  5. ZOLOFT [Concomitant]
     Indication: DEPRESSION
     Dosage: UNK
  6. SOLIRIS [Suspect]
     Indication: HAEMOLYTIC URAEMIC SYNDROME
     Dosage: 300 MG, QW
     Route: 042
     Dates: start: 20120401
  7. CALCIUM CARBONATE [Concomitant]
     Indication: SUPPLEMENTATION THERAPY

REACTIONS (6)
  - BLOOD CREATININE INCREASED [None]
  - NUCLEAR MAGNETIC RESONANCE IMAGING BRAIN ABNORMAL [None]
  - SINUSITIS [None]
  - BONE MARROW FAILURE [None]
  - LYMPHOCYTE COUNT ABNORMAL [None]
  - PYREXIA [None]
